FAERS Safety Report 8010483-6 (Version None)
Quarter: 2011Q4

REPORT INFORMATION
  Report Type: 
  Country: None (occurrence: None)
  Receive Date: 20111123
  Receipt Date: 20110819
  Transmission Date: 20120403
  Serious: No
  Sender: FDA-Public Use
  Company Number: 334208

PATIENT
  Age: 72 Year
  Sex: Female

DRUGS (3)
  1. VICTOZA [Suspect]
     Indication: TYPE 2 DIABETES MELLITUS
     Dosage: , SUBCUTANEOUS
     Route: 058
  2. GLIPIZIDE [Concomitant]
  3. LEVEMIR [Concomitant]

REACTIONS (6)
  - DECREASED APPETITE [None]
  - NAUSEA [None]
  - ABDOMINAL PAIN UPPER [None]
  - HEADACHE [None]
  - DIARRHOEA [None]
  - BLOOD GLUCOSE INCREASED [None]
